FAERS Safety Report 10217987 (Version 1)
Quarter: 2014Q2

REPORT INFORMATION
  Report Type: Spontaneous
  Country: US (occurrence: US)
  Receive Date: 20140605
  Receipt Date: 20140605
  Transmission Date: 20141212
  Serious: No
  Sender: FDA-Public Use
  Company Number: US-BIOGENIDEC-2014BI046205

PATIENT
  Age: 68 Year
  Sex: Male

DRUGS (2)
  1. TECFIDERA [Suspect]
     Indication: MULTIPLE SCLEROSIS
     Route: 048
     Dates: start: 2013
  2. TECFIDERA [Suspect]
     Indication: MULTIPLE SCLEROSIS
     Route: 048
     Dates: end: 2014

REACTIONS (5)
  - Drug ineffective [Unknown]
  - Neuralgia [Unknown]
  - Pain [Unknown]
  - Multiple sclerosis [Unknown]
  - Nuclear magnetic resonance imaging spinal abnormal [Unknown]
